FAERS Safety Report 8620369-1 (Version None)
Quarter: 2012Q3

REPORT INFORMATION
  Report Type: 
  Country: None (occurrence: None)
  Receive Date: 20120824
  Receipt Date: 20120817
  Transmission Date: 20120928
  Serious: Yes (Hospitalization)
  Sender: FDA-Public Use
  Company Number: US-GLAXOSMITHKLINE-A0990092A

PATIENT
  Age: 74 Year
  Sex: Female

DRUGS (3)
  1. AVANDIA [Suspect]
     Indication: TYPE 2 DIABETES MELLITUS
     Route: 048
  2. GLIPIZIDE [Concomitant]
  3. TIMOPTIC [Concomitant]

REACTIONS (5)
  - PARALYSIS [None]
  - MYOCARDIAL INFARCTION [None]
  - MUSCULOSKELETAL CHEST PAIN [None]
  - MUSCULOSKELETAL PAIN [None]
  - CEREBROVASCULAR ACCIDENT [None]
